FAERS Safety Report 5007559-4 (Version None)
Quarter: 2006Q2

REPORT INFORMATION
  Report Type: 
  Country: None (occurrence: None)
  Receive Date: 20060522
  Receipt Date: 20060511
  Transmission Date: 20061013
  Serious: Yes (Other)
  Sender: FDA-Public Use
  Company Number: US-JNJFOC-20060300217

PATIENT
  Sex: Female
  Weight: 57.61 kg

DRUGS (14)
  1. REMICADE [Suspect]
     Indication: RHEUMATOID ARTHRITIS
     Route: 042
  2. ARAVA [Concomitant]
  3. LOTREL [Concomitant]
  4. LOTREL [Concomitant]
  5. XANAX [Concomitant]
  6. DIGITEK [Concomitant]
  7. ACTONEL [Concomitant]
  8. VICODIN [Concomitant]
  9. VICODIN [Concomitant]
  10. NEURONTIN [Concomitant]
  11. PREDNISONE TAB [Concomitant]
  12. PEPCID [Concomitant]
  13. PERCOCET [Concomitant]
  14. PERCOCET [Concomitant]
     Dosage: 2-3 A DAY

REACTIONS (2)
  - PULMONARY MASS [None]
  - TONGUE NEOPLASM MALIGNANT STAGE UNSPECIFIED [None]
